FAERS Safety Report 5623101-9 (Version None)
Quarter: 2008Q1

REPORT INFORMATION
  Report Type: 
  Country: None (occurrence: None)
  Receive Date: 20080212
  Receipt Date: 20080205
  Transmission Date: 20080703
  Serious: Yes (Other)
  Sender: FDA-Public Use
  Company Number: A0665900A

PATIENT
  Age: 41 Year
  Sex: Male
  Weight: 114.1 kg

DRUGS (3)
  1. ZYBAN [Suspect]
     Indication: SMOKING CESSATION THERAPY
     Dosage: 150MG TWICE PER DAY
     Route: 048
     Dates: start: 20051009
  2. VALIUM [Concomitant]
  3. PSYCHOTROPIC MEDICATIONS [Concomitant]

REACTIONS (20)
  - ANOREXIA [None]
  - ANXIETY [None]
  - BLOOD IRON INCREASED [None]
  - BURSITIS [None]
  - CONSTIPATION [None]
  - DECREASED APPETITE [None]
  - DRUG ADMINISTRATION ERROR [None]
  - DRY MOUTH [None]
  - GOUT [None]
  - HEART RATE INCREASED [None]
  - INFLUENZA [None]
  - INSOMNIA [None]
  - RASH [None]
  - RESTLESSNESS [None]
  - STOMACH DISCOMFORT [None]
  - SUICIDAL IDEATION [None]
  - THIRST [None]
  - VOMITING [None]
  - WEIGHT DECREASED [None]
  - WEIGHT INCREASED [None]
